FAERS Safety Report 19959758 (Version 2)
Quarter: 2022Q1

REPORT INFORMATION
  Report Type: Spontaneous
  Country: US (occurrence: US)
  Receive Date: 20211015
  Receipt Date: 20220228
  Transmission Date: 20220423
  Serious: Yes (Other)
  Sender: FDA-Public Use
  Company Number: US-GLAXOSMITHKLINE-US2021GSK214109

PATIENT

DRUGS (12)
  1. ZANTAC [Suspect]
     Active Substance: RANITIDINE HYDROCHLORIDE
     Indication: Dyspepsia
     Dosage: 75 MG, QD
     Route: 065
     Dates: start: 200001, end: 201001
  2. ZANTAC [Suspect]
     Active Substance: RANITIDINE HYDROCHLORIDE
     Indication: Dyspepsia
     Dosage: UNK SMALLER DOSAGE, WE
     Route: 065
     Dates: start: 198501, end: 201901
  3. ZANTAC [Suspect]
     Active Substance: RANITIDINE HYDROCHLORIDE
     Indication: Nausea
     Dosage: SMALLER DOSAGE, 2-3 TIMES A WEEK
     Route: 065
     Dates: start: 198501, end: 201901
  4. ZANTAC [Suspect]
     Active Substance: RANITIDINE HYDROCHLORIDE
     Indication: Dyspepsia
     Dosage: 75 MG, QD
     Route: 065
     Dates: start: 200001, end: 201001
  5. ZANTAC [Suspect]
     Active Substance: RANITIDINE HYDROCHLORIDE
     Indication: Dyspepsia
     Dosage: UNK SMALLER DOSAGE, WE
     Route: 065
     Dates: start: 198501, end: 201901
  6. ZANTAC [Suspect]
     Active Substance: RANITIDINE HYDROCHLORIDE
     Indication: Nausea
     Dosage: SMALLER DOSAGE,2-3 TIMES A WEEK
     Route: 065
     Dates: start: 198501, end: 201901
  7. RANITIDINE [Suspect]
     Active Substance: RANITIDINE
     Indication: Dyspepsia
     Dosage: UNK SMALLER DOSAGE, WE
     Route: 065
     Dates: start: 198501, end: 201901
  8. RANITIDINE [Suspect]
     Active Substance: RANITIDINE
     Indication: Dyspepsia
     Dosage: SMALLER DOSAGE, 2-3 TIMES A WEEK
     Route: 065
     Dates: start: 198501, end: 201901
  9. RANITIDINE [Suspect]
     Active Substance: RANITIDINE
     Indication: Nausea
  10. RANITIDINE [Suspect]
     Active Substance: RANITIDINE
     Indication: Dyspepsia
     Dosage: UNK SMALLER DOSAGE, WE
     Route: 065
     Dates: start: 198501, end: 201901
  11. RANITIDINE [Suspect]
     Active Substance: RANITIDINE
     Indication: Dyspepsia
     Dosage: SMALLER DOSAGE, 2-3 TIMES A WEEK
     Route: 065
     Dates: start: 198501, end: 201901
  12. RANITIDINE [Suspect]
     Active Substance: RANITIDINE
     Indication: Nausea

REACTIONS (1)
  - Colorectal cancer [Unknown]
